FAERS Safety Report 9045890 (Version 1)
Quarter: 2013Q1

REPORT INFORMATION
  Report Type: Report from Study
  Country: US (occurrence: US)
  Receive Date: 20130201
  Receipt Date: 20130201
  Transmission Date: 20140127
  Serious: Yes (Hospitalization)
  Sender: FDA-Public Use
  Company Number: US-ABBOTT-12P-163-1022183-00

PATIENT
  Age: 66 None
  Sex: Female
  Weight: 67.19 kg

DRUGS (4)
  1. HUMIRA PEN [Suspect]
     Indication: RHEUMATOID ARTHRITIS
     Dates: start: 20061206
  2. AUGMENTIN [Suspect]
     Indication: GASTROINTESTINAL INFECTION
     Dates: start: 20121208
  3. LOVENOX [Concomitant]
     Indication: THROMBOSIS PROPHYLAXIS
     Dates: start: 201212, end: 201212
  4. METHOTREXATE [Concomitant]
     Indication: PRODUCT USED FOR UNKNOWN INDICATION

REACTIONS (6)
  - Abdominal pain [Recovering/Resolving]
  - Abdominal tenderness [Recovered/Resolved]
  - Nausea [Not Recovered/Not Resolved]
  - Glaucoma [Not Recovered/Not Resolved]
  - Cataract [Unknown]
  - Gastrointestinal infection [Unknown]
